FAERS Safety Report 8840128 (Version 1)
Quarter: 2012Q4

REPORT INFORMATION
  Report Type: Report from Study
  Country: DE (occurrence: DE)
  Receive Date: 20121015
  Receipt Date: 20121015
  Transmission Date: 20130627
  Serious: Yes (Death, Hospitalization)
  Sender: FDA-Public Use
  Company Number: DE-ROCHE-1144494

PATIENT
  Age: 54 Year
  Sex: Female
  Weight: 69 kg

DRUGS (7)
  1. TRASTUZUMAB [Suspect]
     Indication: BREAST CANCER
     Route: 042
     Dates: start: 20100608, end: 20110629
  2. XELODA [Concomitant]
     Indication: BREAST CANCER
     Dosage: daily d1-14 qd22
     Route: 048
     Dates: start: 20111124, end: 20120904
  3. FLUOROURACIL [Concomitant]
     Indication: BREAST CANCER
     Route: 042
     Dates: start: 20100406, end: 20100518
  4. EPIRUBICIN [Concomitant]
     Indication: BREAST CANCER
     Route: 042
     Dates: start: 20100406, end: 20100518
  5. CYCLOPHOSPHAMID [Concomitant]
     Indication: BREAST CANCER
     Route: 042
     Dates: start: 20100406, end: 20100518
  6. DOCETAXEL [Concomitant]
     Indication: BREAST CANCER
     Route: 042
     Dates: start: 20100608, end: 20100720
  7. TYVERB [Concomitant]
     Indication: BREAST CANCER
     Dosage: daily d1-14 qd22
     Route: 048
     Dates: start: 20111124, end: 20120904

REACTIONS (2)
  - Pulmonary embolism [Fatal]
  - Pneumonia [Fatal]
